FAERS Safety Report 7532787-3 (Version None)
Quarter: 2011Q2

REPORT INFORMATION
  Report Type: 
  Country: None (occurrence: None)
  Receive Date: 20110608
  Receipt Date: 20110601
  Transmission Date: 20111010
  Serious: Yes (Other)
  Sender: FDA-Public Use
  Company Number: B0723346A

PATIENT
  Age: 15 Year
  Sex: Female
  Weight: 62 kg

DRUGS (6)
  1. DUAC [Suspect]
     Dates: start: 20110520
  2. ERYTHROMYCIN [Concomitant]
     Dates: start: 20110520
  3. QVAR 40 [Concomitant]
     Dates: start: 20101117
  4. ALBUTEROL [Concomitant]
     Dates: start: 20110201
  5. VENTOLIN HFA [Concomitant]
     Dates: start: 20100315, end: 20110410
  6. CETIRIZINE HCL [Concomitant]
     Dates: start: 20110520

REACTIONS (1)
  - APPLICATION SITE RASH [None]
